FAERS Safety Report 24084137 (Version 2)
Quarter: 2024Q3

REPORT INFORMATION
  Report Type: Spontaneous
  Country: US (occurrence: US)
  Receive Date: 20240712
  Receipt Date: 20240725
  Transmission Date: 20241017
  Serious: Yes (Hospitalization, Other)
  Sender: TAKEDA
  Company Number: US-TAKEDA-2024TUS070206

PATIENT
  Age: 52 Year
  Sex: Female

DRUGS (2)
  1. ENTYVIO [Suspect]
     Active Substance: VEDOLIZUMAB
     Indication: Colitis ulcerative
     Dosage: 300 MILLIGRAM
     Route: 042
     Dates: start: 202211
  2. ENTYVIO [Suspect]
     Active Substance: VEDOLIZUMAB
     Dosage: 300 MILLIGRAM, Q4WEEKS
     Route: 042
     Dates: start: 202312

REACTIONS (10)
  - Colitis ulcerative [Unknown]
  - Renal impairment [Unknown]
  - Off label use [Unknown]
  - Hypoaesthesia oral [Unknown]
  - Swollen tongue [Unknown]
  - Paraesthesia oral [Not Recovered/Not Resolved]
  - Oropharyngeal discomfort [Unknown]
  - Antinuclear antibody increased [Unknown]
  - Hepatic function abnormal [Unknown]
  - Arthralgia [Unknown]

NARRATIVE: CASE EVENT DATE: 20231201
